FAERS Safety Report 9456042 (Version 1)
Quarter: 2013Q3

REPORT INFORMATION
  Report Type: Spontaneous
  Country: GB (occurrence: None)
  Receive Date: 20130808
  Receipt Date: 20130808
  Transmission Date: 20140515
  Serious: Yes (Congenital Anomaly)
  Sender: FDA-Public Use
  Company Number: 2013GMK006368

PATIENT
  Sex: Female

DRUGS (2)
  1. GABAPENTIN [Suspect]
     Indication: DIABETIC NEUROPATHY
  2. INSULIN [Concomitant]

REACTIONS (5)
  - Brain malformation [None]
  - Congenital anomaly [None]
  - Limb deformity [None]
  - Caudal regression syndrome [None]
  - Maternal drugs affecting foetus [None]
